FAERS Safety Report 10493794 (Version 1)
Quarter: 2014Q4

REPORT INFORMATION
  Report Type: Spontaneous
  Country: US (occurrence: US)
  Receive Date: 20141002
  Receipt Date: 20141002
  Transmission Date: 20150528
  Serious: Yes (Other)
  Sender: FDA-Public Use
  Company Number: PHHY2014US125937

PATIENT
  Age: 45 Year
  Sex: Male

DRUGS (12)
  1. NORDIAZEPAM [Suspect]
     Active Substance: NORDAZEPAM
  2. BUPRENORPHINE [Suspect]
     Active Substance: BUPRENORPHINE
  3. CITALOPRAM [Suspect]
     Active Substance: CITALOPRAM HYDROBROMIDE
  4. BENZODIAZEPINES [Suspect]
     Active Substance: BENZODIAZEPINE
  5. LEVAMISOLE [Suspect]
     Active Substance: LEVAMISOLE
  6. METHYLPHENIDATE [Suspect]
     Active Substance: METHYLPHENIDATE
  7. COCAINE [Suspect]
     Active Substance: COCAINE
  8. DIPHENHYDRAMINE [Suspect]
     Active Substance: DIPHENHYDRAMINE
  9. HYDROXYZINE [Suspect]
     Active Substance: HYDROXYZINE\HYDROXYZINE HYDROCHLORIDE
  10. TRAZODONE [Suspect]
     Active Substance: TRAZODONE HYDROCHLORIDE
  11. OPIOIDS [Suspect]
     Active Substance: UNSPECIFIED INGREDIENT
  12. MORPHINE [Suspect]
     Active Substance: MORPHINE

REACTIONS (1)
  - Substance abuse [Unknown]
